FAERS Safety Report 21725223 (Version 3)
Quarter: 2022Q4

REPORT INFORMATION
  Report Type: Spontaneous
  Country: US (occurrence: US)
  Receive Date: 20221214
  Receipt Date: 20221220
  Transmission Date: 20230113
  Serious: Yes (Death)
  Sender: FDA-Public Use
  Company Number: US-JNJFOC-20221220046

PATIENT
  Age: 69 Year
  Sex: Male
  Weight: 95.340 kg

DRUGS (3)
  1. BALVERSA [Suspect]
     Active Substance: ERDAFITINIB
     Indication: Renal cancer
     Route: 048
     Dates: start: 202208
  2. BALVERSA [Suspect]
     Active Substance: ERDAFITINIB
     Indication: Lymphoma
     Route: 065
  3. BALVERSA [Suspect]
     Active Substance: ERDAFITINIB
     Route: 065

REACTIONS (3)
  - Death [Fatal]
  - Adverse drug reaction [Unknown]
  - Off label use [Unknown]
